FAERS Safety Report 19920684 (Version 1)
Quarter: 2021Q4

REPORT INFORMATION
  Report Type: Report from Study
  Country: ES (occurrence: ES)
  Receive Date: 20211005
  Receipt Date: 20211005
  Transmission Date: 20220303
  Serious: Yes (Hospitalization, Other)
  Sender: FDA-Public Use
  Company Number: ES-CELGENE-ESP-20170511080

PATIENT
  Age: 66 Year
  Sex: Male

DRUGS (17)
  1. DEXAMETHASONE [Suspect]
     Active Substance: DEXAMETHASONE
     Indication: Plasma cell myeloma
     Dosage: 2 MILLIGRAM
     Route: 065
     Dates: start: 20091101, end: 20100228
  2. DEXAMETHASONE [Suspect]
     Active Substance: DEXAMETHASONE
     Dosage: UNK
     Route: 065
     Dates: start: 20100301, end: 20110130
  3. DEXAMETHASONE [Suspect]
     Active Substance: DEXAMETHASONE
     Dosage: 2 MILLIGRAM
     Route: 065
     Dates: start: 20140910, end: 20150928
  4. DEXAMETHASONE [Suspect]
     Active Substance: DEXAMETHASONE
     Dosage: 4 MILLIGRAM, QD (2 MILLIGRAM )
     Route: 065
     Dates: start: 20160105
  5. DEXAMETHASONE [Suspect]
     Active Substance: DEXAMETHASONE
     Dosage: UNK
     Route: 065
     Dates: start: 20071101, end: 20080528
  6. POMALIDOMIDE [Suspect]
     Active Substance: POMALIDOMIDE
     Indication: Plasma cell myeloma
     Dosage: 84 MILLIGRAM, MONTHLY (4 MILLIGRAM)
     Route: 048
     Dates: start: 20160105
  7. BEMIPARIN [Concomitant]
     Active Substance: BEMIPARIN
     Indication: Deep vein thrombosis
     Dosage: 12500 INTERNATIONAL UNIT
     Route: 065
     Dates: start: 20170525, end: 20170608
  8. ALLOPURINOL [Concomitant]
     Active Substance: ALLOPURINOL
     Indication: Blood uric acid
     Dosage: 100 MILLIGRAM
     Route: 065
     Dates: start: 20160105
  9. TINZAPARIN [Concomitant]
     Active Substance: TINZAPARIN
     Indication: Deep vein thrombosis
     Dosage: 18000 INTERNATIONAL UNIT
     Route: 065
     Dates: start: 20170519, end: 20170524
  10. TESTOSTERONE [Concomitant]
     Active Substance: TESTOSTERONE
     Indication: Hypogonadism
     Dosage: UNK
     Route: 065
     Dates: start: 20170101
  11. SULFAMETHOXAZOLE\TRIMETHOPRIM [Concomitant]
     Active Substance: SULFAMETHOXAZOLE\TRIMETHOPRIM
     Indication: Antibiotic prophylaxis
     Dosage: 2 UNK, QW (160MG/800MG)
     Route: 065
     Dates: start: 20160401
  12. RABEPRAZOLE [Concomitant]
     Active Substance: RABEPRAZOLE
     Indication: Gastritis prophylaxis
     Dosage: 20 MILLIGRAM
     Route: 065
     Dates: start: 20160105
  13. CALCIFEDIOL [Concomitant]
     Active Substance: CALCIFEDIOL
     Indication: Vitamin D deficiency
     Dosage: 266 MICROGRAM (Q15D)
     Route: 065
     Dates: start: 20160701
  14. FENTANYL [Concomitant]
     Active Substance: FENTANYL
     Indication: Pain in extremity
     Dosage: UNK
  15. FENTANYL [Concomitant]
     Active Substance: FENTANYL
     Indication: Chest pain
     Dosage: 12.5 MICROGRAM, Q3D (72 HOURS)
     Route: 065
  16. IBUPROFEN [Concomitant]
     Active Substance: IBUPROFEN
     Indication: Back pain
     Dosage: 600 MILLIGRAM
     Route: 065
     Dates: start: 20161121
  17. FOLIC ACID [Concomitant]
     Active Substance: FOLIC ACID
     Indication: Nutritional supplementation
     Dosage: 5 MILLIGRAM
     Route: 065
     Dates: start: 20160401

REACTIONS (4)
  - Adenocarcinoma of colon [Recovered/Resolved with Sequelae]
  - Respiratory failure [Recovered/Resolved]
  - Streptococcus test positive [Recovered/Resolved]
  - Pneumonia [Recovered/Resolved]

NARRATIVE: CASE EVENT DATE: 20170416
